FAERS Safety Report 15630883 (Version 1)
Quarter: 2018Q4

REPORT INFORMATION
  Report Type: Report from Study
  Country: JP (occurrence: JP)
  Receive Date: 20181119
  Receipt Date: 20181119
  Transmission Date: 20190205
  Serious: Yes (Other)
  Sender: FDA-Public Use
  Company Number: JP-ADIENNEP-2018AD000519

PATIENT

DRUGS (2)
  1. THIOTEPA. [Suspect]
     Active Substance: THIOTEPA
     Indication: STEM CELL TRANSPLANT
     Dosage: 4 DOSAGES 200 MG/M2 DAILY CONTINOUS INFUSION ON DAYS -12, -11, -5, -4
  2. MELPHALAN. [Suspect]
     Active Substance: MELPHALAN
     Indication: STEM CELL TRANSPLANT
     Dosage: 4 DOSAGES 70 MG/M2 DAILY ONE-HOUR INFUSION ON DAYS -12, -11, -5, -4

REACTIONS (1)
  - Small intestinal ulcer haemorrhage [Recovered/Resolved]
